APPROVED DRUG PRODUCT: GEOPEN
Active Ingredient: CARBENICILLIN DISODIUM
Strength: EQ 2GM BASE/VIAL
Dosage Form/Route: INJECTABLE;INJECTION
Application: N050306 | Product #004
Applicant: ROERIG DIV PFIZER INC
Approved: Approved Prior to Jan 1, 1982 | RLD: No | RS: No | Type: DISCN